FAERS Safety Report 4443142-7 (Version None)
Quarter: 2004Q3

REPORT INFORMATION
  Report Type: 
  Country: None (occurrence: None)
  Receive Date: 20040901
  Receipt Date: 20040819
  Transmission Date: 20050211
  Serious: Yes (Hospitalization)
  Sender: FDA-Public Use
  Company Number: 2004CG00877

PATIENT
  Age: 79 Year
  Sex: Female
  Weight: 64 kg

DRUGS (8)
  1. ARIMIDEX [Suspect]
     Indication: BREAST CANCER
     Dosage: 1 MG QD PO
     Route: 048
     Dates: start: 20010414, end: 20040315
  2. NOLVADEX [Concomitant]
  3. DILTIAZEM HYDROCHLORIDE [Concomitant]
  4. CORVASAL [Concomitant]
  5. PRAVASTATIN [Concomitant]
  6. KARDEGIC /FRA/ [Concomitant]
  7. ADANCOR [Concomitant]
  8. LANSOPRAZOLE [Concomitant]

REACTIONS (4)
  - CARDIAC FAILURE [None]
  - LYMPH NODE CALCIFICATION [None]
  - PALPITATIONS [None]
  - RESPIRATORY FAILURE [None]
